FAERS Safety Report 14153058 (Version 1)
Quarter: 2017Q4

REPORT INFORMATION
  Report Type: Spontaneous
  Country: US (occurrence: US)
  Receive Date: 20171102
  Receipt Date: 20171102
  Transmission Date: 20180321
  Serious: No
  Sender: FDA-Public Use
  Company Number: US-UPSHER-SMITH LABORATORIES, INC.-2017USL00126

PATIENT
  Sex: Male

DRUGS (11)
  1. JANTOVEN [Suspect]
     Active Substance: WARFARIN SODIUM
     Dosage: 5 MG, 1X/DAY
  2. DILTIAZEM. [Concomitant]
     Active Substance: DILTIAZEM
     Dosage: 60 MG, 2X/DAY
  3. JANTOVEN [Suspect]
     Active Substance: WARFARIN SODIUM
     Dosage: 7.5 MG, 1X/WEEK
     Route: 048
  4. RAMIPRIL. [Concomitant]
     Active Substance: RAMIPRIL
     Dosage: 10 MG, 1X/DAY
  5. TRAMADOL. [Concomitant]
     Active Substance: TRAMADOL
     Dosage: 50 MG, AS NEEDED
  6. SPIRONOLACTONE. [Concomitant]
     Active Substance: SPIRONOLACTONE
     Dosage: 25 MG, 1X/DAY
  7. JANTOVEN [Suspect]
     Active Substance: WARFARIN SODIUM
     Dosage: 10 MG, 1X/WEEK
     Route: 048
  8. BUMEX [Concomitant]
     Active Substance: BUMETANIDE
     Dosage: 2 MG, 1X/DAY
  9. LIPITOR [Concomitant]
     Active Substance: ATORVASTATIN CALCIUM
     Dosage: 40 MG, 1X/DAY
  10. KLONOPIN [Concomitant]
     Active Substance: CLONAZEPAM
     Dosage: 1 MG, 1X/DAY
  11. PROAIR INHALER [Concomitant]
     Active Substance: ALBUTEROL SULFATE

REACTIONS (1)
  - International normalised ratio decreased [Recovered/Resolved]
